FAERS Safety Report 4309394-9 (Version None)
Quarter: 2004Q1

REPORT INFORMATION
  Report Type: 
  Country: None (occurrence: None)
  Receive Date: 20040302
  Receipt Date: 20031203
  Transmission Date: 20041129
  Serious: Yes (Life-Threatening, Other)
  Sender: FDA-Public Use
  Company Number: US-BRISTOL-MYERS SQUIBB COMPANY-12448791

PATIENT
  Age: 72 Year
  Sex: Female
  Weight: 66 kg

DRUGS (3)
  1. COUMADIN [Suspect]
     Indication: CEREBROVASCULAR ACCIDENT
     Dosage: DOSE:  3MG: SUN-MON-WED-THUR  2MG: TUE-FRI-SAT
     Route: 048
     Dates: start: 20030131
  2. DIOVAN [Concomitant]
  3. ASPIRIN [Concomitant]

REACTIONS (8)
  - ANAEMIA [None]
  - APHASIA [None]
  - CEREBROVASCULAR ACCIDENT [None]
  - CONTUSION [None]
  - EPISTAXIS [None]
  - INTERNATIONAL NORMALISED RATIO ABNORMAL [None]
  - POLYP [None]
  - STOMACH DISCOMFORT [None]
